FAERS Safety Report 15516339 (Version 1)
Quarter: 2018Q4

REPORT INFORMATION
  Report Type: Spontaneous
  Country: JP (occurrence: JP)
  Receive Date: 20181017
  Receipt Date: 20181017
  Transmission Date: 20190205
  Serious: Yes (Hospitalization, Other)
  Sender: FDA-Public Use
  Company Number: JP-BRISTOL-MYERS SQUIBB COMPANY-BMS-2017-066993

PATIENT
  Age: 60 Year
  Sex: Female

DRUGS (1)
  1. OPDIVO [Suspect]
     Active Substance: NIVOLUMAB
     Indication: NON-SMALL CELL LUNG CANCER RECURRENT
     Dosage: 129 MG, UNK
     Route: 041
     Dates: start: 20160625

REACTIONS (8)
  - Hypoglycaemia [Unknown]
  - Adrenocorticotropic hormone deficiency [Recovering/Resolving]
  - Malaise [Unknown]
  - Secondary adrenocortical insufficiency [Recovering/Resolving]
  - Decreased appetite [Unknown]
  - Hypothyroidism [Unknown]
  - Altered state of consciousness [Unknown]
  - Bronchitis [Unknown]

NARRATIVE: CASE EVENT DATE: 20160822
